FAERS Safety Report 8704729 (Version 4)
Quarter: 2012Q4

REPORT INFORMATION
  Report Type: Report from Study
  Country: NL (occurrence: NL)
  Receive Date: 20120803
  Receipt Date: 20120919
  Transmission Date: 20130627
  Serious: Yes (Death, Hospitalization)
  Sender: FDA-Public Use
  Company Number: NL-ROCHE-1089285

PATIENT
  Age: 58 Year
  Sex: Male
  Weight: 60 kg

DRUGS (14)
  1. MABTHERA [Suspect]
     Indication: RHEUMATOID ARTHRITIS
     Route: 042
     Dates: start: 20091212
  2. MABTHERA [Suspect]
     Route: 042
     Dates: start: 20101104
  3. MABTHERA [Suspect]
     Route: 042
     Dates: start: 20101118
  4. MABTHERA [Suspect]
     Route: 042
     Dates: start: 201202, end: 20120522
  5. METHOTREXATE [Suspect]
     Indication: RHEUMATOID ARTHRITIS
     Route: 048
     Dates: start: 200111
  6. PREDNISOLONE [Suspect]
     Indication: RHEUMATOID ARTHRITIS
     Dosage: 10-20mg
     Route: 048
     Dates: start: 20030116, end: 20120522
  7. PREDNISOLONE [Suspect]
     Route: 048
     Dates: start: 2001
  8. PREDNISOLONE [Suspect]
     Dosage: 5-15mg
     Route: 048
     Dates: start: 2001
  9. OMEPRAZOL [Concomitant]
     Route: 065
  10. ACTONEL [Concomitant]
     Route: 065
  11. ENALAPRIL [Concomitant]
     Route: 065
  12. FOLIC ACID [Concomitant]
     Route: 065
  13. SPIRIVA [Concomitant]
     Route: 065
  14. FORMOTEROL [Concomitant]

REACTIONS (2)
  - Progressive multifocal leukoencephalopathy [Not Recovered/Not Resolved]
  - Progressive multifocal leukoencephalopathy [Fatal]
